FAERS Safety Report 8583657-3 (Version None)
Quarter: 2012Q3

REPORT INFORMATION
  Report Type: 
  Country: None (occurrence: None)
  Receive Date: 20120809
  Receipt Date: 20120628
  Transmission Date: 20120928
  Serious: Yes (Life-Threatening)
  Sender: FDA-Public Use
  Company Number: US-009507513-1207USA004504

PATIENT

DRUGS (1)
  1. SAPHRIS [Suspect]
     Dosage: 1 DF, ONCE
     Route: 060

REACTIONS (2)
  - SWOLLEN TONGUE [None]
  - HYPERSENSITIVITY [None]
